FAERS Safety Report 9325771 (Version 3)
Quarter: 2013Q3

REPORT INFORMATION
  Report Type: Report from Study
  Country: NL (occurrence: NL)
  Receive Date: 20130604
  Receipt Date: 20130821
  Transmission Date: 20140515
  Serious: Yes (Hospitalization, Other)
  Sender: FDA-Public Use
  Company Number: NL-GENZYME-CLOF-1002666

PATIENT
  Age: 64 Year
  Sex: Male
  Weight: 76 kg

DRUGS (13)
  1. EVOLTRA [Suspect]
     Indication: ACUTE MYELOID LEUKAEMIA
     Dosage: UNK (CYCLE 1)
     Route: 065
  2. EVOLTRA [Suspect]
     Dosage: 20 MG, QD (CYCLE 2)
     Route: 042
     Dates: start: 20130425, end: 20130429
  3. CYTARABINE [Suspect]
     Indication: ACUTE MYELOID LEUKAEMIA
     Dosage: 2X2000 MG, UNK
     Route: 042
     Dates: start: 20130425
  4. AMSACRINE [Suspect]
     Indication: ACUTE MYELOID LEUKAEMIA
     Dosage: 240 MG, UNK
     Route: 042
     Dates: start: 20130428
  5. VFEND [Concomitant]
     Indication: ANTIFUNGAL PROPHYLAXIS
     Dosage: 2X200 MG, UNK
     Route: 065
     Dates: start: 201305
  6. VFEND [Concomitant]
     Dosage: 400 MG, UNK
     Route: 048
     Dates: start: 20130513
  7. ESOMEPRAZOLE [Concomitant]
     Indication: PROPHYLAXIS
     Dosage: 20 MG, UNK
     Route: 048
     Dates: start: 20130501
  8. FOLIUMZUUR [Concomitant]
     Indication: PROPHYLAXIS
     Dosage: 5 MG, UNK
     Route: 048
     Dates: start: 20130425
  9. ZELITREX [Concomitant]
     Indication: PROPHYLAXIS
     Dosage: 1000 MG, UNK
     Route: 048
     Dates: start: 20130424
  10. AMOXICILLINE [Concomitant]
     Indication: INFECTION PROPHYLAXIS
     Dosage: 1500 MG, UNK
     Route: 048
     Dates: start: 20130516
  11. CEFTAZIDIME [Concomitant]
     Indication: INFECTION PROPHYLAXIS
     Dosage: 3X1000 MG, UNK
     Route: 042
     Dates: start: 20130513
  12. CIPROFLOXACINE [Concomitant]
     Indication: PROPHYLAXIS
     Dosage: 1000 MG, UNK
     Route: 048
     Dates: start: 20130425
  13. FLUCONAZOL [Concomitant]
     Indication: PROPHYLAXIS
     Dosage: 100 MG, UNK
     Route: 048
     Dates: start: 20130425

REACTIONS (3)
  - Cough [Recovered/Resolved]
  - Bronchopulmonary aspergillosis [Recovered/Resolved]
  - Pyrexia [Recovered/Resolved]
